FAERS Safety Report 8803021 (Version 2)
Quarter: 2012Q4

REPORT INFORMATION
  Report Type: 
  Country: FR (occurrence: FR)
  Receive Date: 20120924
  Receipt Date: 20121023
  Transmission Date: 20130627
  Serious: Yes (Hospitalization)
  Sender: FDA-Public Use
  Company Number: FR-009507513-1209FRA009338

PATIENT
  Age: 78 Year
  Sex: Male

DRUGS (6)
  1. COZAAR 100MG, COMPRIM? PELLICUL? [Suspect]
     Indication: HYPERTENSION
     Dosage: 100 mg, qd
     Route: 048
     Dates: start: 19990202, end: 20120726
  2. XATRAL [Concomitant]
     Indication: BENIGN PROSTATIC HYPERPLASIA
     Dosage: 10 mg, qd
     Route: 048
     Dates: start: 20101116
  3. PERMIXON [Concomitant]
     Indication: BENIGN PROSTATIC HYPERPLASIA
     Dosage: 160 mg, bid
     Route: 048
     Dates: start: 20120307
  4. VASTAREL [Concomitant]
     Indication: DIZZINESS
     Dosage: 35 mg, bid
     Route: 048
  5. ZOPICLONE [Concomitant]
     Indication: SLEEP DISORDER
     Dosage: UNK
     Route: 048
     Dates: start: 20101116
  6. LACTULOSE [Concomitant]
     Indication: CONSTIPATION
     Dosage: UNK
     Route: 048
     Dates: start: 20050824

REACTIONS (1)
  - Hyponatraemia [Recovered/Resolved]
